FAERS Safety Report 19989512 (Version 1)
Quarter: 2021Q4

REPORT INFORMATION
  Report Type: Spontaneous
  Country: US (occurrence: US)
  Receive Date: 20211025
  Receipt Date: 20211025
  Transmission Date: 20220303
  Serious: Yes (Hospitalization)
  Sender: FDA-Public Use
  Company Number: US-JNJFOC-20211025134

PATIENT
  Age: 17 Year
  Sex: Male
  Weight: 68 kg

DRUGS (1)
  1. TYLENOL EXTRA STRENGTH [Suspect]
     Active Substance: ACETAMINOPHEN
     Indication: Suicide attempt
     Dosage: SINGLE TOTAL DOSE OF 24000 MG OF ACETAMINOPHEN AT 20:00 (48 TYLENOL EXTRA STRENGTH; APPROXIMATELY 24
     Route: 048
     Dates: start: 20020721, end: 20020721

REACTIONS (4)
  - Suicide attempt [Recovering/Resolving]
  - Bradycardia [Recovering/Resolving]
  - Acute hepatic failure [Recovering/Resolving]
  - Intentional overdose [Recovering/Resolving]

NARRATIVE: CASE EVENT DATE: 20020726
